FAERS Safety Report 24047411 (Version 3)
Quarter: 2024Q3

REPORT INFORMATION
  Report Type: Report from Study
  Country: US (occurrence: US)
  Receive Date: 20240703
  Receipt Date: 20240912
  Transmission Date: 20241017
  Serious: No
  Sender: ALEXION PHARMACEUTICALS
  Company Number: US-ALXN-A202300149

PATIENT
  Age: 44 Year
  Sex: Female

DRUGS (2)
  1. STRENSIQ [Suspect]
     Active Substance: ASFOTASE ALFA
     Indication: Hypophosphatasia
     Dosage: UNK
     Route: 058
  2. STRENSIQ [Suspect]
     Active Substance: ASFOTASE ALFA
     Dosage: UNK
     Route: 058
     Dates: start: 202303

REACTIONS (7)
  - Influenza [Recovered/Resolved]
  - COVID-19 [Recovered/Resolved]
  - Feeling abnormal [Recovered/Resolved]
  - Blood pressure increased [Recovered/Resolved]
  - Gait disturbance [Recovered/Resolved]
  - Neck pain [Recovered/Resolved]
  - Pain in extremity [Recovered/Resolved]

NARRATIVE: CASE EVENT DATE: 20240101
